FAERS Safety Report 16527108 (Version 5)
Quarter: 2019Q3

REPORT INFORMATION
  Report Type: Spontaneous
  Country: US (occurrence: US)
  Receive Date: 20190703
  Receipt Date: 20190924
  Transmission Date: 20191004
  Serious: Yes (Other)
  Sender: FDA-Public Use
  Company Number: US-ACTELION-A-NJ2019-192451

PATIENT
  Sex: Female

DRUGS (1)
  1. OPSUMIT [Suspect]
     Active Substance: MACITENTAN
     Indication: PULMONARY ARTERIAL HYPERTENSION
     Dosage: 10 MG, QD
     Route: 048
     Dates: start: 20190514

REACTIONS (5)
  - Dialysis [Unknown]
  - Oxygen therapy [Unknown]
  - Pulmonary hypertension [Unknown]
  - Nasal congestion [Unknown]
  - Lung infection [Unknown]
